FAERS Safety Report 7194125-8 (Version None)
Quarter: 2010Q4

REPORT INFORMATION
  Report Type: 
  Country: None (occurrence: None)
  Receive Date: 20101223
  Receipt Date: 20101215
  Transmission Date: 20110411
  Serious: Yes (Hospitalization)
  Sender: FDA-Public Use
  Company Number: PHHY2010SE85951

PATIENT
  Sex: Male

DRUGS (12)
  1. RIFAMPICIN [Suspect]
     Indication: TUBERCULOSIS
     Dosage: 600 MG, UNK
     Route: 048
     Dates: start: 20100305, end: 20100915
  2. ISONIAZID [Suspect]
     Indication: TUBERCULOSIS
     Dosage: UNK
  3. ETHAMBUTOL (NGX) [Suspect]
     Indication: TUBERCULOSIS
     Dosage: UNK
  4. PYRAZINAMIDE [Suspect]
     Indication: TUBERCULOSIS
     Dosage: UNK
  5. PYRIDOXINE HCL [Suspect]
     Indication: TUBERCULOSIS
     Dosage: UNK
  6. ENALAPRIL MALEATE [Concomitant]
     Dosage: UNK
  7. ALVEDON [Concomitant]
     Dosage: UNK
  8. METOPROLOL TARTRATE [Concomitant]
     Dosage: UNK
  9. FELODIPINE [Concomitant]
     Dosage: UNK
  10. SALURES [Concomitant]
     Dosage: UNK
  11. TIBINIDE [Concomitant]
     Dosage: UNK
  12. FURIX [Concomitant]
     Dosage: UNK

REACTIONS (9)
  - ABDOMINAL PAIN UPPER [None]
  - BLOOD CREATININE INCREASED [None]
  - HAEMATURIA [None]
  - HYPOALBUMINAEMIA [None]
  - NEPHRITIC SYNDROME [None]
  - NEPHRITIS [None]
  - PNEUMONIA [None]
  - PROTEINURIA [None]
  - SCHISTOSOMIASIS [None]
